FAERS Safety Report 25316613 (Version 1)
Quarter: 2025Q2

REPORT INFORMATION
  Report Type: Spontaneous
  Country: CZ (occurrence: CZ)
  Receive Date: 20250515
  Receipt Date: 20250515
  Transmission Date: 20250717
  Serious: Yes (Life-Threatening, Hospitalization, Other)
  Sender: ACCORD
  Company Number: None

PATIENT
  Age: 64 Year
  Sex: Male
  Weight: 77 kg

DRUGS (7)
  1. CAPECITABINE [Suspect]
     Active Substance: CAPECITABINE
     Indication: Colorectal cancer
     Dosage: STRENGTH: 500 MG TABLET 3-0-3
     Dates: start: 20250213, end: 20250303
  2. INDAPAMIDE [Concomitant]
     Active Substance: INDAPAMIDE
  3. BISOPROLOL FUMARATE [Concomitant]
     Active Substance: BISOPROLOL FUMARATE
  4. NITRENDIPINE [Concomitant]
     Active Substance: NITRENDIPINE
  5. ZALDIAR [Concomitant]
     Active Substance: ACETAMINOPHEN\TRAMADOL HYDROCHLORIDE
  6. DESLORATADINE [Concomitant]
     Active Substance: DESLORATADINE
  7. FLUTICASONE FUROATE [Concomitant]
     Active Substance: FLUTICASONE FUROATE

REACTIONS (11)
  - Leukopenia [Recovering/Resolving]
  - Palmar-plantar erythrodysaesthesia syndrome [Recovering/Resolving]
  - Intestinal haemorrhage [Recovering/Resolving]
  - Pancytopenia [Recovering/Resolving]
  - Diarrhoea haemorrhagic [Recovering/Resolving]
  - Aphthous ulcer [Recovering/Resolving]
  - Gastrointestinal oedema [Recovering/Resolving]
  - Enterocolitis [Recovering/Resolving]
  - Ileus [Recovering/Resolving]
  - Condition aggravated [Recovering/Resolving]
  - Pyrexia [Recovering/Resolving]

NARRATIVE: CASE EVENT DATE: 20250304
